FAERS Safety Report 4373403-1 (Version None)
Quarter: 2004Q2

REPORT INFORMATION
  Report Type: 
  Country: None (occurrence: None)
  Receive Date: 20040607
  Receipt Date: 20030617
  Transmission Date: 20050107
  Serious: Yes (Hospitalization)
  Sender: FDA-Public Use
  Company Number: 340457

PATIENT
  Age: 23 Year
  Sex: Female
  Weight: 55.8 kg

DRUGS (2)
  1. ACCUTANE [Suspect]
     Indication: ACNE
     Dosage: 40 MG 2 PER DAY ORAL
     Route: 048
     Dates: start: 20030317, end: 20030516
  2. ORAL CONTRACEPTIVES NOS (ORAL CONTRACEPTIVES NOS) [Concomitant]

REACTIONS (6)
  - ABDOMINAL PAIN [None]
  - ADVERSE EVENT [None]
  - DEHYDRATION [None]
  - DIARRHOEA [None]
  - HAEMATOCHEZIA [None]
  - INFLAMMATORY BOWEL DISEASE [None]
